FAERS Safety Report 11912495 (Version 2)
Quarter: 2016Q1

REPORT INFORMATION
  Report Type: Spontaneous
  Country: BR (occurrence: BR)
  Receive Date: 20160113
  Receipt Date: 20160205
  Transmission Date: 20160526
  Serious: Yes (Death, Hospitalization)
  Sender: FDA-Public Use
  Company Number: BR-PFIZER INC-2016010654

PATIENT
  Age: 68 Year
  Sex: Female

DRUGS (2)
  1. SUTENT [Suspect]
     Active Substance: SUNITINIB MALATE
     Indication: METASTATIC RENAL CELL CARCINOMA
     Dosage: 50 MG, UNK
     Route: 048
     Dates: start: 201508, end: 201512
  2. AAS [Concomitant]
     Active Substance: ASPIRIN

REACTIONS (4)
  - Pain [Unknown]
  - Metastatic renal cell carcinoma [Fatal]
  - Asthenia [Unknown]
  - Disease progression [Fatal]
